FAERS Safety Report 6222968-3 (Version None)
Quarter: 2009Q2

REPORT INFORMATION
  Report Type: 
  Country: None (occurrence: None)
  Receive Date: 20090611
  Receipt Date: 20090602
  Transmission Date: 20091009
  Serious: No
  Sender: FDA-Public Use
  Company Number: JP-PFIZER INC-2009218378

PATIENT
  Age: 70 Year

DRUGS (5)
  1. CARDENALIN [Suspect]
     Dosage: 0.5 MG, 1X/DAY
     Route: 048
  2. NORVASC [Suspect]
     Dosage: 5 MG, 1X/DAY
     Route: 048
  3. ASPIRIN [Concomitant]
  4. MEVALOTIN [Concomitant]
  5. FAMOTIDINE [Concomitant]

REACTIONS (1)
  - HYPOKALAEMIA [None]
